FAERS Safety Report 17157885 (Version 2)
Quarter: 2020Q1

REPORT INFORMATION
  Report Type: Report from Study
  Country: CN (occurrence: CN)
  Receive Date: 20191216
  Receipt Date: 20200103
  Transmission Date: 20200409
  Serious: Yes (Hospitalization)
  Sender: FDA-Public Use
  Company Number: CN-BAYER-2019-181922

PATIENT
  Age: 54 Year
  Sex: Male
  Weight: 72 kg

DRUGS (4)
  1. COPANLISIB. [Suspect]
     Active Substance: COPANLISIB
     Indication: B-CELL LYMPHOMA RECURRENT
     Dosage: 60 MG, QD
     Route: 042
     Dates: start: 20190925, end: 20190925
  2. COPANLISIB. [Suspect]
     Active Substance: COPANLISIB
     Indication: B-CELL LYMPHOMA RECURRENT
     Dosage: 60 MG, QD
     Route: 042
     Dates: start: 20191128, end: 20191128
  3. RITUXIMAB. [Suspect]
     Active Substance: RITUXIMAB
     Indication: B-CELL LYMPHOMA RECURRENT
  4. BENDAMUSTINE [Suspect]
     Active Substance: BENDAMUSTINE
     Indication: B-CELL LYMPHOMA RECURRENT

REACTIONS (2)
  - Pneumonia [Recovering/Resolving]
  - Cytomegalovirus infection [Recovered/Resolved]

NARRATIVE: CASE EVENT DATE: 20191005
